FAERS Safety Report 7219590-9 (Version None)
Quarter: 2011Q1

REPORT INFORMATION
  Report Type: 
  Country: None (occurrence: None)
  Receive Date: 20110103
  Receipt Date: 20101220
  Transmission Date: 20110831
  Serious: Yes (Hospitalization, Other)
  Sender: FDA-Public Use
  Company Number: 2010SP025075

PATIENT
  Age: 23 Year
  Sex: Female
  Weight: 61.2356 kg

DRUGS (2)
  1. NUVARING [Suspect]
     Indication: CONTRACEPTION
     Dosage: VAG
     Route: 067
     Dates: start: 20040101, end: 20070419
  2. NUVARING [Suspect]
     Indication: MENSTRUATION IRREGULAR
     Dosage: VAG
     Route: 067
     Dates: start: 20040101, end: 20070419

REACTIONS (12)
  - DEEP VEIN THROMBOSIS [None]
  - HYPERCOAGULATION [None]
  - DRUG EXPOSURE BEFORE PREGNANCY [None]
  - INTERNATIONAL NORMALISED RATIO INCREASED [None]
  - ABORTION SPONTANEOUS [None]
  - DRUG EXPOSURE DURING PREGNANCY [None]
  - PREGNANCY WITH CONTRACEPTIVE DEVICE [None]
  - THYROID NEOPLASM [None]
  - ABORTION INDUCED [None]
  - PULMONARY EMBOLISM [None]
  - INTERNATIONAL NORMALISED RATIO DECREASED [None]
  - PLEURITIC PAIN [None]
